FAERS Safety Report 5684258-7 (Version None)
Quarter: 2008Q1

REPORT INFORMATION
  Report Type: 
  Country: None (occurrence: None)
  Receive Date: 20080328
  Receipt Date: 20071016
  Transmission Date: 20080703
  Serious: No
  Sender: FDA-Public Use
  Company Number: US-AMGEN-KDL248133

PATIENT
  Sex: Female

DRUGS (3)
  1. NEULASTA [Suspect]
     Indication: CHEMOTHERAPY
     Dates: start: 20071007
  2. EPIRUBICIN [Concomitant]
  3. CYTOXAN [Concomitant]

REACTIONS (3)
  - DRUG INEFFECTIVE [None]
  - RASH PRURITIC [None]
  - SECRETION DISCHARGE [None]
